FAERS Safety Report 14418729 (Version 1)
Quarter: 2018Q1

REPORT INFORMATION
  Report Type: Spontaneous
  Country: US (occurrence: US)
  Receive Date: 20180122
  Receipt Date: 20180122
  Transmission Date: 20180509
  Serious: Yes (Other)
  Sender: FDA-Public Use
  Company Number: US-TEVA-822532USA

PATIENT
  Age: 60 Year
  Sex: Male

DRUGS (1)
  1. GALZIN [Suspect]
     Active Substance: ZINC ACETATE
     Route: 065

REACTIONS (2)
  - Cerebral disorder [Unknown]
  - Nervous system disorder [Unknown]
